FAERS Safety Report 11935385 (Version 1)
Quarter: 2016Q1

REPORT INFORMATION
  Report Type: Spontaneous
  Country: US (occurrence: US)
  Receive Date: 20160121
  Receipt Date: 20160121
  Transmission Date: 20160526
  Serious: No
  Sender: FDA-Public Use
  Company Number: US-OTSUKA-2015_016597

PATIENT
  Age: 50 Year
  Sex: Female

DRUGS (6)
  1. TANZEUM [Concomitant]
     Active Substance: ALBIGLUTIDE
     Indication: WEIGHT DECREASED
  2. XANAX [Concomitant]
     Active Substance: ALPRAZOLAM
     Indication: PRODUCT USED FOR UNKNOWN INDICATION
     Dosage: UNK, PRN
     Route: 065
  3. REXULTI [Suspect]
     Active Substance: BREXPIPRAZOLE
     Indication: DEPRESSION
     Dosage: 0.5 MG, QD
     Route: 048
     Dates: start: 201512
  4. TANZEUM [Concomitant]
     Active Substance: ALBIGLUTIDE
     Indication: DIABETES MELLITUS
     Dosage: UNK, QW
     Route: 065
     Dates: start: 201509
  5. REXULTI [Suspect]
     Active Substance: BREXPIPRAZOLE
     Indication: ANXIETY
  6. TEMAZEPAM. [Concomitant]
     Active Substance: TEMAZEPAM
     Indication: SLEEP DISORDER
     Dosage: 7.5 MG, AT BED TIME AS NEEDED, NOT MORE 2 TO 3 TIMES A WEEK
     Route: 065

REACTIONS (8)
  - Migraine [Recovering/Resolving]
  - Vision blurred [Recovering/Resolving]
  - Abnormal dreams [Unknown]
  - Product use issue [Unknown]
  - Fatigue [Unknown]
  - Poor quality sleep [Unknown]
  - Disturbance in attention [Unknown]
  - Increased appetite [Unknown]

NARRATIVE: CASE EVENT DATE: 201512
